FAERS Safety Report 7805602-8 (Version None)
Quarter: 2011Q4

REPORT INFORMATION
  Report Type: 
  Country: None (occurrence: None)
  Receive Date: 20111010
  Receipt Date: 20110829
  Transmission Date: 20120403
  Serious: Yes (Other)
  Sender: FDA-Public Use
  Company Number: US-ASTRAZENECA-2011SE54476

PATIENT
  Sex: Female

DRUGS (10)
  1. PRILOSEC [Suspect]
     Route: 048
     Dates: start: 20110727, end: 20110828
  2. GLUCOSAMINE [Concomitant]
  3. PROAIR HFA [Concomitant]
  4. POTASSIUM [Concomitant]
  5. ADVAIR DISKUS 100/50 [Concomitant]
  6. ASPIRIN [Concomitant]
  7. SPIRIVA [Concomitant]
  8. CALCIUM CARBONATE [Concomitant]
  9. ASPIRIN [Concomitant]
  10. CENTRUM [Concomitant]

REACTIONS (4)
  - JAUNDICE [None]
  - NAUSEA [None]
  - VISUAL IMPAIRMENT [None]
  - OCULAR ICTERUS [None]
